FAERS Safety Report 8450362-3 (Version None)
Quarter: 2012Q2

REPORT INFORMATION
  Report Type: 
  Country: None (occurrence: None)
  Receive Date: 20120620
  Receipt Date: 20120618
  Transmission Date: 20120825
  Serious: Yes (Other)
  Sender: FDA-Public Use
  Company Number: US-PFIZER INC-2012147266

PATIENT

DRUGS (2)
  1. ZOLOFT [Suspect]
     Dosage: UNK
  2. GEODON [Suspect]
     Dosage: UNK

REACTIONS (2)
  - GAIT DISTURBANCE [None]
  - FEMUR FRACTURE [None]
